FAERS Safety Report 10633952 (Version 1)
Quarter: 2014Q4

REPORT INFORMATION
  Report Type: Spontaneous
  Country: AU (occurrence: AU)
  Receive Date: 20141205
  Receipt Date: 20141205
  Transmission Date: 20150529
  Serious: Yes (Hospitalization)
  Sender: FDA-Public Use
  Company Number: AU-MYLANLABS-2014M1012023

PATIENT

DRUGS (2)
  1. ARATAC 100 [Suspect]
     Active Substance: AMIODARONE HYDROCHLORIDE
     Indication: PRODUCT USED FOR UNKNOWN INDICATION
     Dosage: 100 MG, AM
     Dates: start: 2014, end: 20141125
  2. KARVEA [Concomitant]
     Active Substance: IRBESARTAN
     Indication: HYPERTENSION

REACTIONS (6)
  - Dizziness [Recovered/Resolved]
  - Tremor [Recovered/Resolved]
  - Aphonia [Recovered/Resolved]
  - Seizure [Recovered/Resolved]
  - Weight decreased [Recovered/Resolved]
  - Loss of consciousness [Recovered/Resolved]

NARRATIVE: CASE EVENT DATE: 2014
